FAERS Safety Report 8110878-6 (Version None)
Quarter: 2012Q1

REPORT INFORMATION
  Report Type: 
  Country: None (occurrence: None)
  Receive Date: 20120203
  Receipt Date: 20120128
  Transmission Date: 20120608
  Serious: Yes (Other)
  Sender: FDA-Public Use
  Company Number: 2012SP000349

PATIENT
  Sex: Male

DRUGS (5)
  1. LATUDA [Suspect]
     Indication: THINKING ABNORMAL
     Route: 048
     Dates: start: 20120105, end: 20120128
  2. ADDERALL 5 [Concomitant]
     Indication: PRODUCT USED FOR UNKNOWN INDICATION
  3. XANAX [Concomitant]
     Indication: PRODUCT USED FOR UNKNOWN INDICATION
  4. ZOLPIDEM [Concomitant]
     Indication: INSOMNIA
  5. LATUDA [Suspect]
     Indication: PARANOIA
     Route: 048
     Dates: start: 20120105, end: 20120128

REACTIONS (12)
  - SALIVARY HYPERSECRETION [None]
  - PHARYNGEAL OEDEMA [None]
  - INSOMNIA [None]
  - ERECTILE DYSFUNCTION [None]
  - DIZZINESS [None]
  - THROAT IRRITATION [None]
  - DYSPHAGIA [None]
  - NAUSEA [None]
  - PHARYNGITIS [None]
  - MOOD SWINGS [None]
  - PAIN [None]
  - DYSKINESIA [None]
